FAERS Safety Report 6262056-3 (Version None)
Quarter: 2009Q3

REPORT INFORMATION
  Report Type: 
  Country: None (occurrence: None)
  Receive Date: 20090709
  Receipt Date: 20090702
  Transmission Date: 20100115
  Serious: Yes (Other)
  Sender: FDA-Public Use
  Company Number: US-ASTRAZENECA-2009UW18568

PATIENT
  Age: 64 Year
  Sex: Female
  Weight: 70.3 kg

DRUGS (16)
  1. NEXIUM [Suspect]
     Indication: ILL-DEFINED DISORDER
     Route: 048
  2. NEXIUM [Suspect]
     Indication: GASTROOESOPHAGEAL REFLUX DISEASE
     Route: 048
  3. ASPIRIN [Concomitant]
  4. CRESTOR [Concomitant]
     Indication: BLOOD CHOLESTEROL
     Route: 048
  5. AMBIEN CR [Concomitant]
  6. CYMBALTA [Concomitant]
  7. AMITIZA [Concomitant]
     Indication: DIARRHOEA
  8. JANUVIA [Concomitant]
     Indication: DIABETES MELLITUS
  9. ACTOS [Concomitant]
  10. LEVOTHYROX [Concomitant]
     Indication: THYROID DISORDER
  11. LORAZEPAM [Concomitant]
  12. ATENOLOL [Concomitant]
  13. LANTUS [Concomitant]
     Dosage: 10 UNITS DAILY
  14. PRIMIDONE [Concomitant]
     Indication: ESSENTIAL TREMOR
  15. METFORMIN HCL [Concomitant]
  16. STRATTERA [Concomitant]
     Indication: ATTENTION DEFICIT/HYPERACTIVITY DISORDER

REACTIONS (10)
  - ATTENTION DEFICIT/HYPERACTIVITY DISORDER [None]
  - CEREBROVASCULAR ACCIDENT [None]
  - CHOREA [None]
  - DYSKINESIA [None]
  - FALL [None]
  - JAW DISORDER [None]
  - JOINT STIFFNESS [None]
  - LIMB DISCOMFORT [None]
  - OSTEOPENIA [None]
  - TONGUE DISORDER [None]
